FAERS Safety Report 24315759 (Version 1)
Quarter: 2024Q3

REPORT INFORMATION
  Report Type: Report from Study
  Country: GB (occurrence: GB)
  Receive Date: 20240913
  Receipt Date: 20240913
  Transmission Date: 20241017
  Serious: Yes (Hospitalization, Other)
  Sender: SAMSUNG BIOEPIS
  Company Number: GB-SAMSUNG BIOEPIS-SB-2024-26805

PATIENT
  Age: 80 Year
  Sex: Male
  Weight: 105 kg

DRUGS (10)
  1. IMRALDI [Suspect]
     Active Substance: ADALIMUMAB
     Indication: Psoriasis
     Dates: start: 20190128, end: 20191023
  2. IMRALDI [Suspect]
     Active Substance: ADALIMUMAB
     Dates: start: 20191024, end: 20200129
  3. IMRALDI [Suspect]
     Active Substance: ADALIMUMAB
     Dates: start: 20200130
  4. VENTOLIN [Concomitant]
     Active Substance: ALBUTEROL SULFATE
     Indication: Product used for unknown indication
     Dates: start: 20100721
  5. DuoResp Spiromax inhaler [Concomitant]
     Indication: Product used for unknown indication
     Dosage: INHALER;
     Dates: start: 20151202
  6. Umeclidinium Bromide inhaler [Concomitant]
     Indication: Product used for unknown indication
     Dates: start: 20220301
  7. FYBOGEL [Concomitant]
     Active Substance: HERBALS\PLANTAGO OVATA SEED
     Indication: Product used for unknown indication
     Dates: start: 20220606
  8. AMLODIPINE [Concomitant]
     Active Substance: AMLODIPINE BESYLATE
     Indication: Product used for unknown indication
     Dates: start: 20220905
  9. FUROSEMIDE [Concomitant]
     Active Substance: FUROSEMIDE
     Indication: Product used for unknown indication
     Dates: start: 20221230
  10. TAMSULOSIN HYDROCHLORIDE [Concomitant]
     Active Substance: TAMSULOSIN HYDROCHLORIDE
     Indication: Product used for unknown indication
     Dates: start: 20230123

REACTIONS (5)
  - Respiratory syncytial virus infection [Recovered/Resolved with Sequelae]
  - Respiratory failure [Recovered/Resolved with Sequelae]
  - Constipation [Unknown]
  - Sleep apnoea syndrome [Unknown]
  - Off label use [Unknown]

NARRATIVE: CASE EVENT DATE: 20231223
